FAERS Safety Report 13883932 (Version 1)
Quarter: 2017Q3

REPORT INFORMATION
  Report Type: Spontaneous
  Country: US (occurrence: None)
  Receive Date: 20170815
  Receipt Date: 20170815
  Transmission Date: 20171127
  Serious: Yes (Hospitalization)
  Sender: FDA-Public Use
  Company Number: None

PATIENT
  Age: 72 Year
  Sex: Female
  Weight: 39.92 kg

DRUGS (1)
  1. KEYTRUDA [Suspect]
     Active Substance: PEMBROLIZUMAB
     Indication: NON-SMALL CELL LUNG CANCER
     Route: 042
     Dates: start: 20170728

REACTIONS (5)
  - Dysphonia [None]
  - Dysphagia [None]
  - Performance status decreased [None]
  - Pain [None]
  - Liquid product physical issue [None]

NARRATIVE: CASE EVENT DATE: 20170807
